FAERS Safety Report 12797900 (Version 1)
Quarter: 2016Q3

REPORT INFORMATION
  Report Type: Spontaneous
  Country: US (occurrence: US)
  Receive Date: 20160930
  Receipt Date: 20160930
  Transmission Date: 20161109
  Serious: No
  Sender: FDA-Public Use
  Company Number: US-LUPIN PHARMACEUTICALS INC.-E2B_00005452

PATIENT
  Sex: Female

DRUGS (1)
  1. CEPHALEXIN CAPSULES 500 MG [Suspect]
     Active Substance: CEPHALEXIN
     Indication: POSTOPERATIVE CARE
     Route: 048
     Dates: start: 20160428, end: 20160505

REACTIONS (3)
  - Product odour abnormal [Unknown]
  - Dysgeusia [Recovered/Resolved]
  - Vomiting [Recovered/Resolved]
